FAERS Safety Report 6010688-X (Version None)
Quarter: 2008Q4

REPORT INFORMATION
  Report Type: 
  Country: None (occurrence: None)
  Receive Date: 20081218
  Receipt Date: 20081209
  Transmission Date: 20090506
  Serious: Yes (Disabling)
  Sender: FDA-Public Use
  Company Number: US-ROCHE-600588

PATIENT
  Sex: Male

DRUGS (20)
  1. FUZEON [Suspect]
     Dosage: FORM: VIAL, TWICE DAILY
     Route: 058
     Dates: start: 20030910, end: 20070223
  2. IMODIUM [Concomitant]
  3. REYATAZ [Concomitant]
  4. NORVIR [Concomitant]
  5. VIREAD [Concomitant]
  6. COMBIVIR [Concomitant]
  7. ATROVENT NEBULISER [Concomitant]
  8. ALBUTEROL [Concomitant]
     Dosage: DRUG: ALBUTEROL NEB SOL.
  9. COMBIVENT [Concomitant]
     Dosage: DOSAGE REGIMEN: 2 PUFFS Q40
  10. ALBUTEROL [Concomitant]
     Dosage: DOSAGE REGIMEN: 2 PUFFS Q 40
     Route: 055
  11. ULTRAM [Concomitant]
  12. IBUPROFEN [Concomitant]
  13. BACTRIM DS [Concomitant]
  14. NEURONTIN [Concomitant]
  15. PAXIL [Concomitant]
  16. AMBIEN [Concomitant]
     Dosage: AT BEDTIME
  17. LIPITOR [Concomitant]
  18. ZYRTEC [Concomitant]
  19. ELAVIL [Concomitant]
     Dosage: AT BEDTIME
  20. ANALPRAM-HC [Concomitant]

REACTIONS (2)
  - AMYLOIDOSIS [None]
  - INJECTION SITE REACTION [None]
